FAERS Safety Report 15122608 (Version 1)
Quarter: 2018Q3

REPORT INFORMATION
  Report Type: Spontaneous
  Country: US (occurrence: US)
  Receive Date: 20180613
  Receipt Date: 20180613
  Transmission Date: 20181010
  Serious: Yes (Death, Hospitalization)
  Sender: FDA-Public Use
  Company Number: None

PATIENT
  Age: 10 Year
  Sex: Female
  Weight: 48 kg

DRUGS (9)
  1. METHOTREXATE. [Suspect]
     Active Substance: METHOTREXATE
     Dates: end: 20140406
  2. G?CSF [Concomitant]
     Active Substance: GRANULOCYTE COLONY-STIMULATING FACTOR NOS
  3. PREDNISONE. [Suspect]
     Active Substance: PREDNISONE
     Dates: end: 20140408
  4. DOXORUBICIN [Concomitant]
     Active Substance: DOXORUBICIN
  5. RITUXIMAB. [Concomitant]
     Active Substance: RITUXIMAB
  6. VINCRISTINE SULFATE. [Suspect]
     Active Substance: VINCRISTINE SULFATE
     Dates: end: 20140406
  7. LEUCOVORIN. [Concomitant]
     Active Substance: LEUCOVORIN
  8. CYCLOPHOSPHAMIDE. [Suspect]
     Active Substance: CYCLOPHOSPHAMIDE
     Dates: end: 20140410
  9. MTX?HC?ARAC [Concomitant]

REACTIONS (10)
  - Bacterial sepsis [None]
  - Gastrointestinal necrosis [None]
  - Mental status changes [None]
  - Metabolic acidosis [None]
  - Cerebral calcification [None]
  - Multiple organ dysfunction syndrome [None]
  - Oxygen saturation decreased [None]
  - Respiratory distress [None]
  - Septic shock [None]
  - Intra-abdominal pressure increased [None]

NARRATIVE: CASE EVENT DATE: 20140410
